FAERS Safety Report 7751867-0 (Version None)
Quarter: 2011Q3

REPORT INFORMATION
  Report Type: 
  Country: None (occurrence: None)
  Receive Date: 20110914
  Receipt Date: 20110914
  Transmission Date: 20111222
  Serious: Yes (Death, Hospitalization)
  Sender: FDA-Public Use
  Company Number: None

PATIENT
  Age: 59 Year
  Sex: Male
  Weight: 79.3795 kg

DRUGS (9)
  1. AVODART [Concomitant]
  2. ACYCLOVIR [Concomitant]
  3. PRILOSEC [Concomitant]
  4. SLOW MAGNESIUM [Concomitant]
  5. ITRACONAZOLE [Concomitant]
  6. ADVAIR DISKUS 100/50 [Concomitant]
  7. DAPSONE [Concomitant]
  8. PROGRAF [Suspect]
     Indication: GRAFT VERSUS HOST DISEASE
     Dosage: 05 MG
     Dates: start: 20100401
  9. AMLODIPINE [Concomitant]

REACTIONS (9)
  - INTERSTITIAL LUNG DISEASE [None]
  - HAEMODYNAMIC INSTABILITY [None]
  - UNRESPONSIVE TO STIMULI [None]
  - ACUTE RESPIRATORY FAILURE [None]
  - RENAL FAILURE ACUTE [None]
  - REFUSAL OF TREATMENT BY RELATIVE [None]
  - RESPIROVIRUS TEST POSITIVE [None]
  - LOBAR PNEUMONIA [None]
  - ACUTE RESPIRATORY DISTRESS SYNDROME [None]
